FAERS Safety Report 6154919-4 (Version None)
Quarter: 2009Q2

REPORT INFORMATION
  Report Type: 
  Country: None (occurrence: None)
  Receive Date: 20090414
  Receipt Date: 20090402
  Transmission Date: 20091009
  Serious: Yes (Death, Other)
  Sender: FDA-Public Use
  Company Number: US-PFIZER INC-2009194763

PATIENT
  Sex: Male
  Weight: 86 kg

DRUGS (15)
  1. XANAX [Suspect]
     Dosage: 2 MG, UNK
  2. METHADONE [Suspect]
     Indication: BACK PAIN
     Dosage: 10 MG, 4X/DAY
     Dates: start: 20050601
  3. VALIUM [Suspect]
  4. OXYCODONE [Concomitant]
  5. OXYCONTIN [Concomitant]
  6. CARISOPRODOL [Concomitant]
  7. NEXIUM [Concomitant]
  8. LYRICA [Concomitant]
  9. LUNESTA [Concomitant]
  10. LORAZEPAM [Concomitant]
  11. VICODIN [Concomitant]
  12. SYMBYAX [Concomitant]
  13. CYMBALTA [Concomitant]
  14. TOPAMAX [Concomitant]
  15. ALPRAZOLAM [Concomitant]

REACTIONS (3)
  - CORONARY ARTERY DISEASE [None]
  - PULMONARY CONGESTION [None]
  - THERAPEUTIC AGENT TOXICITY [None]
